FAERS Safety Report 4683636-2 (Version None)
Quarter: 2005Q2

REPORT INFORMATION
  Report Type: 
  Country: None (occurrence: None)
  Receive Date: 20050602
  Receipt Date: 20050309
  Transmission Date: 20051028
  Serious: No
  Sender: FDA-Public Use
  Company Number: US_0503114497

PATIENT
  Sex: Female

DRUGS (3)
  1. CYMBALTA [Suspect]
     Dosage: 60 MG
     Dates: start: 20041001
  2. LAMICTAL [Concomitant]
  3. LORAZEPAM [Concomitant]

REACTIONS (7)
  - ABNORMAL DREAMS [None]
  - CHRONIC FATIGUE SYNDROME [None]
  - DIZZINESS [None]
  - HEADACHE [None]
  - PANIC ATTACK [None]
  - SLEEP DISORDER [None]
  - SUICIDAL IDEATION [None]
